FAERS Safety Report 8729749 (Version 2)
Quarter: 2015Q2

REPORT INFORMATION
  Report Type: Report from Study
  Country: US (occurrence: US)
  Receive Date: 20120817
  Receipt Date: 20150626
  Transmission Date: 20150821
  Serious: Yes (Hospitalization, Other)
  Sender: FDA-Public Use
  Company Number: US-ROCHE-1100429

PATIENT
  Sex: Male

DRUGS (3)
  1. ASA [Concomitant]
     Active Substance: ASPIRIN
     Route: 048
  2. NITRO DRIP [Concomitant]
     Route: 041
  3. ACTIVASE [Suspect]
     Active Substance: ALTEPLASE
     Indication: ACUTE MYOCARDIAL INFARCTION
     Dosage: 10 MG BOLUS OVER 10 MIN
     Route: 065

REACTIONS (7)
  - Hypoaesthesia [Unknown]
  - Asthenia [Unknown]
  - Headache [Unknown]
  - Sinus tachycardia [Unknown]
  - Pericardial effusion [Unknown]
  - Anxiety [Unknown]
  - Painful respiration [Unknown]
